FAERS Safety Report 8550293-4 (Version None)
Quarter: 2012Q3

REPORT INFORMATION
  Report Type: 
  Country: None (occurrence: None)
  Receive Date: 20120730
  Receipt Date: 20120726
  Transmission Date: 20120928
  Serious: Yes (Death)
  Sender: FDA-Public Use
  Company Number: PHHY2012KR063858

PATIENT
  Sex: Male
  Weight: 72 kg

DRUGS (1)
  1. TELBIVUDINE [Suspect]
     Indication: HEPATITIS B
     Dosage: 600 MG,  PER DAY
     Route: 048
     Dates: start: 20100803, end: 20101107

REACTIONS (1)
  - HEPATIC FAILURE [None]
